FAERS Safety Report 10052024 (Version 1)
Quarter: 2014Q2

REPORT INFORMATION
  Report Type: Report from Study
  Country: FR (occurrence: FR)
  Receive Date: 20140402
  Receipt Date: 20140402
  Transmission Date: 20141212
  Serious: Yes (Hospitalization)
  Sender: FDA-Public Use
  Company Number: FR-ROCHE-1371336

PATIENT
  Age: 69 Year
  Sex: Female

DRUGS (8)
  1. RITUXIMAB [Suspect]
     Indication: RHEUMATOID ARTHRITIS
     Dosage: DAY 1 (D1).
     Route: 065
     Dates: start: 20080516
  2. METHOTREXATE [Concomitant]
     Route: 065
     Dates: start: 20100406
  3. METHOTREXATE [Concomitant]
     Route: 065
     Dates: start: 20101020
  4. METHOTREXATE [Concomitant]
     Route: 065
     Dates: start: 20110503
  5. CORTANCYL [Concomitant]
     Route: 065
     Dates: start: 20080516
  6. CORTANCYL [Concomitant]
     Route: 065
     Dates: start: 20090930
  7. CORTANCYL [Concomitant]
     Route: 065
     Dates: start: 20100406
  8. CORTANCYL [Concomitant]
     Route: 065
     Dates: start: 20111117

REACTIONS (6)
  - Cholecystectomy [Recovered/Resolved]
  - Pancreatitis [Recovered/Resolved]
  - Encephalitis [Not Recovered/Not Resolved]
  - Partial seizures [Not Recovered/Not Resolved]
  - Synovial rupture [Recovered/Resolved]
  - Herpes zoster [Not Recovered/Not Resolved]
